FAERS Safety Report 24261272 (Version 1)
Quarter: 2024Q3

REPORT INFORMATION
  Report Type: Spontaneous
  Country: US (occurrence: US)
  Receive Date: 20240829
  Receipt Date: 20240829
  Transmission Date: 20241016
  Serious: Yes (Death)
  Sender: SPECGX
  Company Number: US-SPECGX-T202401285

PATIENT

DRUGS (1)
  1. METHYLPHENIDATE HYDROCHLORIDE [Suspect]
     Active Substance: METHYLPHENIDATE HYDROCHLORIDE
     Indication: Cancer fatigue
     Dosage: 5 MILLIGRAM, PRN
     Route: 048

REACTIONS (8)
  - Neoplasm progression [Fatal]
  - Vertigo [Unknown]
  - Tachycardia [Recovered/Resolved]
  - Dizziness [Unknown]
  - Restlessness [Unknown]
  - Decreased appetite [Unknown]
  - Rash [Recovered/Resolved]
  - Drug effective for unapproved indication [Unknown]
